FAERS Safety Report 7439250-9 (Version None)
Quarter: 2011Q2

REPORT INFORMATION
  Report Type: 
  Country: None (occurrence: None)
  Receive Date: 20110421
  Receipt Date: 20110421
  Transmission Date: 20111010
  Serious: Yes (Other)
  Sender: FDA-Public Use
  Company Number: None

PATIENT
  Sex: Female
  Weight: 74.3 kg

DRUGS (1)
  1. VANCOMYCIN [Suspect]
     Indication: OSTEOMYELITIS
     Dosage: 1 GM Q 12 HRS IV
     Route: 042
     Dates: start: 20110321, end: 20110413

REACTIONS (2)
  - NEUTROPHIL COUNT ABNORMAL [None]
  - WHITE BLOOD CELL COUNT DECREASED [None]
